FAERS Safety Report 14188034 (Version 1)
Quarter: 2017Q4

REPORT INFORMATION
  Report Type: Spontaneous
  Country: IT (occurrence: IT)
  Receive Date: 20171114
  Receipt Date: 20171114
  Transmission Date: 20180321
  Serious: Yes (Death, Other)
  Sender: FDA-Public Use
  Company Number: IT-MYLANLABS-PF-K200800145

PATIENT
  Age: 65 Year
  Sex: Male

DRUGS (4)
  1. TRIMETON [Suspect]
     Active Substance: CHLORPHENIRAMINE MALEATE
     Indication: HYPERSENSITIVITY
     Dosage: UNK
     Route: 065
     Dates: start: 20080123, end: 20080123
  2. EPIPEN [Suspect]
     Active Substance: EPINEPHRINE
     Indication: ANAPHYLACTIC REACTION
     Dosage: 165 MCG,TOTAL
     Route: 030
     Dates: start: 20080123, end: 20080123
  3. EPIPEN [Suspect]
     Active Substance: EPINEPHRINE
     Indication: HYPERSENSITIVITY
  4. BENTELAN [Suspect]
     Active Substance: BETAMETHASONE SODIUM PHOSPHATE
     Indication: HYPERSENSITIVITY
     Dosage: UNK
     Route: 065
     Dates: start: 20080123, end: 20080123

REACTIONS (4)
  - Drug ineffective [Fatal]
  - Product quality issue [Unknown]
  - Underdose [Fatal]
  - Device malfunction [Unknown]

NARRATIVE: CASE EVENT DATE: 20080123
